FAERS Safety Report 6844730-0 (Version None)
Quarter: 2010Q3

REPORT INFORMATION
  Report Type: 
  Country: None (occurrence: None)
  Receive Date: 20100712
  Receipt Date: 20100712
  Transmission Date: 20110219
  Serious: Yes (Hospitalization)
  Sender: FDA-Public Use
  Company Number: DSU-2010-02446

PATIENT
  Age: 68 Year
  Sex: Female
  Weight: 58.514 kg

DRUGS (11)
  1. EVOXAC [Suspect]
     Indication: SJOGREN'S SYNDROME
     Dosage: 90 MG (30 MG, TID), PER ORAL
     Route: 048
     Dates: start: 20020101, end: 20090722
  2. EVOXAC [Suspect]
     Indication: SJOGREN'S SYNDROME
     Dosage: 90 MG (30 MG, TID), PER ORAL
     Route: 048
     Dates: start: 20090728, end: 20091121
  3. SOTALOL (SOTALOL) (SOTALOL) [Concomitant]
  4. ATENOLOL [Concomitant]
  5. DIOVAN [Concomitant]
  6. PEPCID (FAMOTIDINE (FAMOTIDINE) [Concomitant]
  7. PLAVIX (CLOPIDOGREL) (CLOPIDOGREL) [Concomitant]
  8. SALAGEN (PILOCARPINE HYDROCHLORIDE) (PILOCARPINE HYDROCHLORIDE) [Concomitant]
  9. NORVASC (AMLODIPINE BESILATE) (AMLODIIPNE BESILATE) [Concomitant]
  10. ALLEGRA (FEXOFENADINE) (FEXOFENADINE) [Concomitant]
  11. SIMVASTATIN [Concomitant]

REACTIONS (3)
  - CORONARY ARTERIAL STENT INSERTION [None]
  - CORONARY ARTERY BYPASS [None]
  - THERAPEUTIC RESPONSE UNEXPECTED [None]
